FAERS Safety Report 5903941-9 (Version None)
Quarter: 2008Q3

REPORT INFORMATION
  Report Type: 
  Country: None (occurrence: None)
  Receive Date: 20080930
  Receipt Date: 20080917
  Transmission Date: 20090109
  Serious: Yes (Hospitalization)
  Sender: FDA-Public Use
  Company Number: FR-ELI_LILLY_AND_COMPANY-FR200809003749

PATIENT
  Sex: Male

DRUGS (9)
  1. PROZAC [Suspect]
     Route: 048
  2. PROZAC [Interacting]
     Dosage: 14 D/F, UNK
     Route: 048
     Dates: start: 20080626, end: 20080626
  3. TENORMIN [Interacting]
     Dosage: 14 D/F, UNK
     Route: 048
     Dates: end: 20080626
  4. SEROPLEX [Interacting]
     Indication: DEPRESSION
     Route: 048
     Dates: end: 20080626
  5. CORTANCYL [Interacting]
     Dosage: 50 MG, DAILY (1/D)
     Route: 048
  6. PREVISCAN [Concomitant]
     Indication: ATRIAL FLUTTER
     Dosage: 20 MG, UNK
     Route: 048
     Dates: start: 20070101, end: 20080628
  7. HEMIGOXINE [Concomitant]
  8. PROPOXYPHENE HCL AND ACETAMINOPHEN [Concomitant]
  9. HAVLANE [Concomitant]

REACTIONS (3)
  - DRUG INTERACTION [None]
  - INTENTIONAL OVERDOSE [None]
  - INTERNATIONAL NORMALISED RATIO INCREASED [None]
